FAERS Safety Report 6819199-2 (Version None)
Quarter: 2010Q3

REPORT INFORMATION
  Report Type: 
  Country: None (occurrence: None)
  Receive Date: 20100707
  Receipt Date: 20100701
  Transmission Date: 20110219
  Serious: Yes (Other)
  Sender: FDA-Public Use
  Company Number: BR-B.I. PHARMACEUTICALS,INC./RIDGEFIELD-2010-BR-00992BR

PATIENT
  Sex: Female

DRUGS (1)
  1. ATENSINA [Suspect]
     Indication: BLOOD PRESSURE INCREASED
     Dosage: NR

REACTIONS (1)
  - BLOOD PRESSURE INCREASED [None]
